FAERS Safety Report 22776596 (Version 2)
Quarter: 2023Q4

REPORT INFORMATION
  Report Type: Spontaneous
  Country: US (occurrence: US)
  Receive Date: 20230802
  Receipt Date: 20231109
  Transmission Date: 20240110
  Serious: No
  Sender: FDA-Public Use
  Company Number: US-SA-SAC20230801001504

PATIENT
  Age: 65 Year
  Sex: Male

DRUGS (1)
  1. DUPIXENT [Suspect]
     Active Substance: DUPILUMAB
     Indication: Neurodermatitis
     Dosage: 300 MG, QOW
     Route: 058

REACTIONS (7)
  - Skin disorder [Unknown]
  - Sensitive skin [Unknown]
  - Condition aggravated [Unknown]
  - Erythema [Unknown]
  - Dry eye [Unknown]
  - Eye pruritus [Unknown]
  - Therapeutic product effect decreased [Unknown]
